FAERS Safety Report 8429782-9 (Version None)
Quarter: 2012Q2

REPORT INFORMATION
  Report Type: 
  Country: None (occurrence: None)
  Receive Date: 20120612
  Receipt Date: 20120530
  Transmission Date: 20120825
  Serious: No
  Sender: FDA-Public Use
  Company Number: US-ASTRAZENECA-2010SE26310

PATIENT
  Age: 74 Year
  Sex: Female

DRUGS (5)
  1. SYMBICORT [Suspect]
     Route: 055
  2. NEXIUM [Suspect]
     Route: 048
  3. CRESTOR [Suspect]
     Route: 048
  4. ACCOLATE [Suspect]
     Route: 048
  5. OXYCODONE HCL [Concomitant]

REACTIONS (11)
  - LOSS OF CONSCIOUSNESS [None]
  - BLADDER DISORDER [None]
  - BACK PAIN [None]
  - BACK DISORDER [None]
  - NAUSEA [None]
  - FALL [None]
  - MEMORY IMPAIRMENT [None]
  - DYSPNOEA [None]
  - PAIN [None]
  - SPINAL DEFORMITY [None]
  - MALAISE [None]
